FAERS Safety Report 4431984-3 (Version None)
Quarter: 2004Q3

REPORT INFORMATION
  Report Type: 
  Country: None (occurrence: None)
  Receive Date: 20040819
  Receipt Date: 20040802
  Transmission Date: 20050211
  Serious: Yes (Other)
  Sender: FDA-Public Use
  Company Number: USA-2004-0016262

PATIENT
  Age: 72 Year
  Sex: Female

DRUGS (1)
  1. MS CONTIN [Suspect]

REACTIONS (20)
  - ARTHRALGIA [None]
  - ASTHENIA [None]
  - BLOOD CREATININE INCREASED [None]
  - CHEST PAIN [None]
  - CONFUSIONAL STATE [None]
  - DECUBITUS ULCER [None]
  - DIPLOPIA [None]
  - DISORIENTATION [None]
  - DISTURBANCE IN ATTENTION [None]
  - DIZZINESS [None]
  - DYSARTHRIA [None]
  - DYSPNOEA [None]
  - HEART RATE DECREASED [None]
  - JOINT SWELLING [None]
  - RENAL FAILURE [None]
  - RESPIRATORY DEPRESSION [None]
  - SEDATION [None]
  - SOMNOLENCE [None]
  - SYNCOPE [None]
  - VISION BLURRED [None]
